FAERS Safety Report 17558268 (Version 2)
Quarter: 2020Q2

REPORT INFORMATION
  Report Type: Spontaneous
  Country: US (occurrence: US)
  Receive Date: 20200319
  Receipt Date: 20200630
  Transmission Date: 20200713
  Serious: Yes (Life-Threatening, Hospitalization, Other)
  Sender: FDA-Public Use
  Company Number: US-DRREDDYS-USA/USA/20/0120774

PATIENT
  Age: 32 Year
  Sex: Female

DRUGS (11)
  1. FLUOROURACIL. [Suspect]
     Active Substance: FLUOROURACIL
     Indication: HEPATOCELLULAR CARCINOMA
  2. OXALIPLATIN. [Suspect]
     Active Substance: OXALIPLATIN
     Indication: HEPATOCELLULAR CARCINOMA
  3. PONATINIB [Suspect]
     Active Substance: PONATINIB
     Indication: HEPATOCELLULAR CARCINOMA
     Route: 065
  4. GEMCITABINE FOR INJECTION USP, 2 GRAMS PER SINGLE-USE VIAL (LYOPHILIZE [Suspect]
     Active Substance: GEMCITABINE
     Indication: HEPATOCELLULAR CARCINOMA
  5. FOLINIC ACID [Suspect]
     Active Substance: LEUCOVORIN
     Indication: HEPATOCELLULAR CARCINOMA
  6. DEXAMETHASONE SODIUM PHOSPHATE INJECTION, 4 MG/ML [Suspect]
     Active Substance: DEXAMETHASONE SODIUM PHOSPHATE
     Indication: NAUSEA
  7. PREDNISONE. [Suspect]
     Active Substance: PREDNISONE
     Indication: RASH
  8. SORAFENIB [Suspect]
     Active Substance: SORAFENIB
     Indication: HEPATOCELLULAR CARCINOMA
  9. NIVOLUMAB [Suspect]
     Active Substance: NIVOLUMAB
     Indication: HEPATOCELLULAR CARCINOMA
     Dosage: EVERY 2 WEEKS AT A STANDARD DOSE FOR 3 MONTHS
     Route: 065
  10. DEXAMETHASONE SODIUM PHOSPHATE INJECTION, 4 MG/ML [Suspect]
     Active Substance: DEXAMETHASONE SODIUM PHOSPHATE
     Indication: TRANSAMINASES INCREASED
     Route: 065
  11. OXALIPLATIN. [Suspect]
     Active Substance: OXALIPLATIN
     Indication: HEPATOCELLULAR CARCINOMA

REACTIONS (5)
  - Condition aggravated [Recovering/Resolving]
  - Hyperammonaemic encephalopathy [Unknown]
  - Soft tissue necrosis [Unknown]
  - Catabolic state [Unknown]
  - Hyperammonaemia [Recovering/Resolving]
